FAERS Safety Report 24145605 (Version 1)
Quarter: 2024Q3

REPORT INFORMATION
  Report Type: Report from Study
  Country: US (occurrence: US)
  Receive Date: 20240729
  Receipt Date: 20240729
  Transmission Date: 20241017
  Serious: No
  Sender: ACADIA PHARMACEUTICALS
  Company Number: US-ACADIA PHARMACEUTICALS INC.-ACA-2024-PIM-003279

PATIENT
  Age: 81 Year
  Sex: Male

DRUGS (14)
  1. NUPLAZID [Suspect]
     Active Substance: PIMAVANSERIN TARTRATE
     Indication: Parkinson^s disease
     Dosage: 10 MILLIGRAM, QD
     Route: 048
     Dates: start: 20240611, end: 20240702
  2. RYTARY [Concomitant]
     Active Substance: CARBIDOPA\LEVODOPA
  3. AMANTADINE [Concomitant]
     Active Substance: AMANTADINE
  4. MELOXICAM [Concomitant]
     Active Substance: MELOXICAM
  5. CITALOPRAM [Concomitant]
     Active Substance: CITALOPRAM\CITALOPRAM HYDROBROMIDE
  6. MIDODRINE [Concomitant]
     Active Substance: MIDODRINE
  7. METOPROLOL TARTRATE [Concomitant]
     Active Substance: METOPROLOL TARTRATE
  8. AZO-CRANBERRY [Concomitant]
  9. VITAMIN D3 [Concomitant]
     Active Substance: CHOLECALCIFEROL
  10. OMEGA-3 FATTY ACIDS [Concomitant]
     Active Substance: OMEGA-3 FATTY ACIDS
  11. OCUVITE [ASCORBIC ACID;RETINOL;TOCOPHEROL] [Concomitant]
  12. CLARITIN [Concomitant]
     Active Substance: LORATADINE
  13. TYLENOL [Concomitant]
     Active Substance: ACETAMINOPHEN
  14. SUDAFED [Concomitant]
     Active Substance: PSEUDOEPHEDRINE HYDROCHLORIDE

REACTIONS (1)
  - Heart rate irregular [Recovered/Resolved]

NARRATIVE: CASE EVENT DATE: 20240702
